FAERS Safety Report 7063805-7 (Version None)
Quarter: 2010Q4

REPORT INFORMATION
  Report Type: 
  Country: None (occurrence: None)
  Receive Date: 20101026
  Receipt Date: 20100824
  Transmission Date: 20110411
  Serious: No
  Sender: FDA-Public Use
  Company Number: US-ABBOTT-10P-163-0667507-00

PATIENT
  Sex: Female
  Weight: 52.21 kg

DRUGS (2)
  1. LUPRON DEPOT [Suspect]
     Indication: PRODUCT USED FOR UNKNOWN INDICATION
     Dates: start: 20100730, end: 20100730
  2. NORETHINDRONE [Concomitant]
     Indication: HORMONE REPLACEMENT THERAPY

REACTIONS (2)
  - DYSPNOEA [None]
  - LIP SWELLING [None]
